FAERS Safety Report 4341528-2 (Version None)
Quarter: 2004Q2

REPORT INFORMATION
  Report Type: 
  Country: None (occurrence: None)
  Receive Date: 20040420
  Receipt Date: 20040304
  Transmission Date: 20050107
  Serious: Yes (Other)
  Sender: FDA-Public Use
  Company Number: 200411673US

PATIENT
  Sex: Male

DRUGS (5)
  1. ARAVA [Suspect]
     Indication: RHEUMATOID ARTHRITIS
     Route: 048
     Dates: start: 20030820, end: 20040201
  2. PHENOBARBITAL TAB [Concomitant]
     Indication: CONVULSION
     Dosage: DOSE: NOT PROVIDED
  3. DILANTIN [Concomitant]
     Indication: CONVULSION
     Dosage: DOSE: NOT PROVIDED
  4. PREDNISONE [Concomitant]
     Indication: RHEUMATOID ARTHRITIS
     Dosage: DOSE: NOT PROVIDED
  5. SERUMLIPIDREDUCING AGENTS [Concomitant]
     Dosage: DOSE: NOT PROVIDED
     Dates: start: 20030801

REACTIONS (4)
  - ALANINE AMINOTRANSFERASE INCREASED [None]
  - ASPARTATE AMINOTRANSFERASE INCREASED [None]
  - BLOOD ALKALINE PHOSPHATASE INCREASED [None]
  - LIVER FUNCTION TEST ABNORMAL [None]
